FAERS Safety Report 5775083-7 (Version None)
Quarter: 2008Q2

REPORT INFORMATION
  Report Type: 
  Country: None (occurrence: None)
  Receive Date: 20080617
  Receipt Date: 20080613
  Transmission Date: 20081010
  Serious: Yes (Death, Other)
  Sender: FDA-Public Use
  Company Number: FR-JNJFOC-20080405153

PATIENT
  Age: 8 Decade
  Sex: Female
  Weight: 87 kg

DRUGS (2)
  1. DOXORUBICIN HCL [Suspect]
     Indication: BREAST CANCER
     Dosage: 2 CYCLES ADMINISTERED
     Route: 042
  2. TAXOTERE [Suspect]
     Indication: BREAST CANCER
     Route: 065

REACTIONS (3)
  - CARDIAC FAILURE [None]
  - SEPTIC SHOCK [None]
  - TOXIC SKIN ERUPTION [None]
